FAERS Safety Report 7589661-6 (Version None)
Quarter: 2011Q3

REPORT INFORMATION
  Report Type: 
  Country: None (occurrence: None)
  Receive Date: 20110705
  Receipt Date: 20110628
  Transmission Date: 20111222
  Serious: Yes (Hospitalization)
  Sender: FDA-Public Use
  Company Number: DE-ROCHE-787255

PATIENT
  Sex: Female
  Weight: 53 kg

DRUGS (8)
  1. PEGINTERFERON ALFA-2A [Suspect]
     Route: 058
     Dates: start: 20110429
  2. CITALOPRAM HYDROBROMIDE [Concomitant]
     Indication: DEPRESSION
     Route: 048
  3. NOVALGIN [Concomitant]
     Dosage: IF REQUIRED
  4. GABAPENTIN [Concomitant]
     Dosage: 1 - 1.5 - 1
     Route: 048
  5. CHLORPROTHIXEN [Concomitant]
     Route: 048
  6. METOPROLOL SUCCINATE [Concomitant]
     Route: 048
  7. RIBAVIRIN [Suspect]
     Route: 048
     Dates: start: 20110429
  8. PANTOPRAZOLE [Concomitant]
     Route: 048

REACTIONS (1)
  - HAEMOLYSIS [None]
